FAERS Safety Report 13441500 (Version 1)
Quarter: 2017Q2

REPORT INFORMATION
  Report Type: Spontaneous
  Country: US (occurrence: US)
  Receive Date: 20170413
  Receipt Date: 20170413
  Transmission Date: 20170830
  Serious: Yes (Hospitalization)
  Sender: FDA-Public Use
  Company Number: US-CIPLA LTD.-2017US06324

PATIENT

DRUGS (5)
  1. ISOPHANE INSULIN [Suspect]
     Active Substance: INSULIN NOS
     Dosage: UNK, BID, 55 UNITS
     Route: 065
  2. METFORMIN [Suspect]
     Active Substance: METFORMIN HYDROCHLORIDE
     Dosage: 500 MG, BID
     Route: 065
  3. LISINOPRIL. [Suspect]
     Active Substance: LISINOPRIL
     Dosage: 20 MG, DAILY
     Route: 065
  4. SIMVASTATIN. [Suspect]
     Active Substance: SIMVASTATIN
     Dosage: 20 MG, DAILY
     Route: 065
  5. INSULIN REGULAR [Suspect]
     Active Substance: INSULIN NOS

REACTIONS (8)
  - Impaired healing [Unknown]
  - Productive cough [Unknown]
  - Small intestinal obstruction [Unknown]
  - Secretion discharge [Unknown]
  - Deep vein thrombosis [Unknown]
  - Appendicitis [Unknown]
  - International normalised ratio decreased [Unknown]
  - Rhinorrhoea [Unknown]
